FAERS Safety Report 21876849 (Version 1)
Quarter: 2023Q1

REPORT INFORMATION
  Report Type: Spontaneous
  Country: GB (occurrence: GB)
  Receive Date: 20230118
  Receipt Date: 20230118
  Transmission Date: 20230418
  Serious: Yes (Other)
  Sender: FDA-Public Use
  Company Number: GB-MHRA-MED-202212241321378860-BCDZV

PATIENT
  Age: 15 Year
  Sex: Female
  Weight: 72 kg

DRUGS (1)
  1. AMOXICILLIN\CLAVULANATE POTASSIUM [Suspect]
     Active Substance: AMOXICILLIN\CLAVULANATE POTASSIUM
     Indication: Tonsillitis bacterial
     Dosage: UNK
     Route: 065
     Dates: start: 20220426, end: 20220429

REACTIONS (8)
  - Hypersensitivity [Recovered/Resolved with Sequelae]
  - Abnormal loss of weight [Unknown]
  - Vomiting [Unknown]
  - Delirium [Unknown]
  - Dyspnoea [Unknown]
  - Tremor [Unknown]
  - Fatigue [Unknown]
  - Medication error [Unknown]

NARRATIVE: CASE EVENT DATE: 20220426
